FAERS Safety Report 8512320 (Version 3)
Quarter: 2013Q1

REPORT INFORMATION
  Report Type: Spontaneous
  Country: US (occurrence: US)
  Receive Date: 20120413
  Receipt Date: 20130326
  Transmission Date: 20140127
  Serious: No
  Sender: FDA-Public Use
  Company Number: US-ASTRAZENECA-2011SE23388

PATIENT
  Age: 71 Year
  Sex: Male

DRUGS (5)
  1. NEXIUM [Suspect]
     Route: 048
  2. PLAVIX [Interacting]
     Route: 048
  3. METOPROLOL [Suspect]
     Route: 048
  4. TOPROL XL [Suspect]
     Route: 048
  5. CRESTOR [Suspect]
     Route: 048

REACTIONS (2)
  - Drug interaction [Unknown]
  - Tremor [Unknown]
